FAERS Safety Report 17058129 (Version 4)
Quarter: 2020Q1

REPORT INFORMATION
  Report Type: Report from Study
  Country: CA (occurrence: CA)
  Receive Date: 20191121
  Receipt Date: 20200228
  Transmission Date: 20200409
  Serious: Yes (Hospitalization, Other)
  Sender: FDA-Public Use
  Company Number: CA-JNJFOC-20191019590

PATIENT
  Age: 22 Year
  Sex: Female
  Weight: 56 kg

DRUGS (2)
  1. STELARA [Suspect]
     Active Substance: USTEKINUMAB
     Indication: CROHN^S DISEASE
     Route: 042
     Dates: start: 20190911
  2. STELARA [Suspect]
     Active Substance: USTEKINUMAB
     Route: 058

REACTIONS (6)
  - Cellulitis [Unknown]
  - Crohn^s disease [Not Recovered/Not Resolved]
  - Pharyngeal ulceration [Unknown]
  - Mouth ulceration [Unknown]
  - Drug ineffective [Unknown]
  - Malnutrition [Unknown]

NARRATIVE: CASE EVENT DATE: 2019
